FAERS Safety Report 18518595 (Version 1)
Quarter: 2020Q4

REPORT INFORMATION
  Report Type: Spontaneous
  Country: MA (occurrence: MA)
  Receive Date: 20201118
  Receipt Date: 20201118
  Transmission Date: 20210114
  Serious: Yes (Other)
  Sender: FDA-Public Use
  Company Number: MA-PFIZER INC-2020442899

PATIENT
  Age: 11 Year
  Sex: Male

DRUGS (1)
  1. GENOTROPIN [Suspect]
     Active Substance: SOMATROPIN
     Dosage: 0.9 MG 6 DAYS/7
     Route: 058
     Dates: start: 20201102, end: 20201106

REACTIONS (4)
  - Malaise [Recovered/Resolved]
  - Pallor [Recovered/Resolved]
  - Loss of consciousness [Recovered/Resolved]
  - Peripheral coldness [Recovered/Resolved]

NARRATIVE: CASE EVENT DATE: 202011
